FAERS Safety Report 7019260-6 (Version None)
Quarter: 2010Q3

REPORT INFORMATION
  Report Type: 
  Country: None (occurrence: None)
  Receive Date: 20100928
  Receipt Date: 20100924
  Transmission Date: 20110219
  Serious: Yes (Hospitalization)
  Sender: FDA-Public Use
  Company Number: US-GILEAD-2010-0031799

PATIENT
  Sex: Male
  Weight: 68.1 kg

DRUGS (11)
  1. LETAIRIS [Suspect]
     Indication: PULMONARY ARTERIAL HYPERTENSION
     Route: 048
     Dates: start: 20100507
  2. REVATIO [Concomitant]
  3. LASIX [Concomitant]
  4. SPIRIVA [Concomitant]
  5. ADVAIR DISKUS 100/50 [Concomitant]
  6. PREDNISONE [Concomitant]
  7. BUDESONIDE [Concomitant]
  8. PRILOSEC [Concomitant]
  9. DETROL LA [Concomitant]
  10. HYDROXYUREA [Concomitant]
  11. LEVOXYL [Concomitant]

REACTIONS (2)
  - CARDIAC FAILURE CONGESTIVE [None]
  - EMPHYSEMA [None]
